FAERS Safety Report 7493204-5 (Version None)
Quarter: 2011Q2

REPORT INFORMATION
  Report Type: 
  Country: None (occurrence: None)
  Receive Date: 20110520
  Receipt Date: 20100812
  Transmission Date: 20111010
  Serious: Yes (Hospitalization, Other)
  Sender: FDA-Public Use
  Company Number: US-BAYER-201024190NA

PATIENT
  Age: 29 Year
  Sex: Female
  Weight: 73 kg

DRUGS (10)
  1. SYNTHROID [Concomitant]
     Indication: HYPOTHYROIDISM
     Dosage: UNK UNK, QD
     Route: 048
     Dates: start: 20060101
  2. ACETAMINOPHEN AND OXYCODONE HCL [Concomitant]
  3. YASMIN [Suspect]
     Indication: PREMENSTRUAL SYNDROME
     Route: 048
     Dates: start: 20051001, end: 20060201
  4. PONSTEL [Concomitant]
     Dosage: 250 MG, UNK
     Route: 048
  5. YASMIN [Suspect]
     Indication: CONTRACEPTION
     Route: 048
     Dates: start: 20050101, end: 20050801
  6. AMPHETAMINE AND DEXTROAMPHETAMINE SALTS [Concomitant]
     Dosage: 15 MG, UNK
     Route: 048
  7. YAZ [Suspect]
     Indication: PRODUCT USED FOR UNKNOWN INDICATION
  8. IBUPROFEN [Concomitant]
     Dosage: 600 MG, UNK
     Route: 048
  9. ACETAMINOPHEN + COD. PHOSP. [Concomitant]
  10. YASMIN [Suspect]
     Dosage: UNK UNK, UNK
     Route: 048
     Dates: start: 20070701, end: 20080301

REACTIONS (5)
  - GALLBLADDER DISORDER [None]
  - ABDOMINAL PAIN [None]
  - CHOLECYSTITIS [None]
  - CHOLELITHIASIS [None]
  - EMOTIONAL DISTRESS [None]
